FAERS Safety Report 24682312 (Version 2)
Quarter: 2024Q4

REPORT INFORMATION
  Report Type: Spontaneous
  Country: US (occurrence: US)
  Receive Date: 20241130
  Receipt Date: 20241216
  Transmission Date: 20250115
  Serious: No
  Sender: TORRENT PHARMA INC.
  Company Number: US-TORRENT-00013871

PATIENT

DRUGS (1)
  1. ESCITALOPRAM OXALATE [Suspect]
     Active Substance: ESCITALOPRAM OXALATE
     Indication: Product used for unknown indication
     Dosage: WHITE ROUND SHAPE TABLET IMPRINTED WITH 135 ON THE FRONT AND 5 ON THE BACK
     Route: 065

REACTIONS (1)
  - Product contamination physical [Unknown]
